FAERS Safety Report 8251133-3 (Version None)
Quarter: 2012Q2

REPORT INFORMATION
  Report Type: 
  Country: None (occurrence: None)
  Receive Date: 20120402
  Receipt Date: 20120322
  Transmission Date: 20120825
  Serious: Yes (Other)
  Sender: FDA-Public Use
  Company Number: US-JNJFOC-20120311407

PATIENT
  Sex: Female
  Weight: 77.11 kg

DRUGS (2)
  1. REMICADE [Suspect]
     Indication: CROHN'S DISEASE
     Route: 042
     Dates: start: 20000101, end: 20120201
  2. REMICADE [Suspect]
     Route: 042
     Dates: start: 20120201

REACTIONS (6)
  - IRON DEFICIENCY [None]
  - ABDOMINAL PAIN UPPER [None]
  - OCULAR HYPERAEMIA [None]
  - HYPERTENSION [None]
  - WEIGHT DECREASED [None]
  - MALAISE [None]
